FAERS Safety Report 9198768 (Version 1)
Quarter: 2013Q1

REPORT INFORMATION
  Report Type: Spontaneous
  Country: US (occurrence: US)
  Receive Date: 20130329
  Receipt Date: 20130329
  Transmission Date: 20140127
  Serious: No
  Sender: FDA-Public Use
  Company Number: US-TEVA-395214USA

PATIENT
  Sex: Female

DRUGS (3)
  1. PLAN B ONE-STEP [Suspect]
     Indication: POST COITAL CONTRACEPTION
     Dosage: 1.5 MILLIGRAM DAILY;
     Route: 048
     Dates: start: 201303, end: 201303
  2. XANAX [Concomitant]
     Indication: ANXIETY
  3. PREDNISONE [Concomitant]
     Indication: NAUSEA

REACTIONS (1)
  - Menstruation irregular [Not Recovered/Not Resolved]
